FAERS Safety Report 4773467-7 (Version None)
Quarter: 2005Q3

REPORT INFORMATION
  Report Type: 
  Country: None (occurrence: None)
  Receive Date: 20050920
  Receipt Date: 20050721
  Transmission Date: 20060218
  Serious: Yes (Hospitalization, Other)
  Sender: FDA-Public Use
  Company Number: PHEH2005US08103

PATIENT
  Age: 52 Year
  Sex: Female
  Weight: 113 kg

DRUGS (13)
  1. ZOMETA [Suspect]
     Indication: BREAST CANCER METASTATIC
     Dosage: 4MG Q28D
     Dates: start: 20020507, end: 20050713
  2. AROMASIN [Concomitant]
     Indication: METASTATIC NEOPLASM
     Dosage: 25MG QD
     Dates: start: 20050311
  3. NEXIUM [Concomitant]
     Dosage: 40MG UNK
     Route: 042
  4. AMBIEN [Concomitant]
     Dosage: 10MG UNK
  5. CLONAZEPAM [Concomitant]
     Indication: SLEEP DISORDER
     Dosage: 1MG QHSPRN
  6. FEMARA [Concomitant]
     Indication: METASTATIC NEOPLASM
     Dosage: 2.5MG QD
     Dates: start: 20020511, end: 20050311
  7. COUMADIN [Concomitant]
  8. LEXAPRO [Concomitant]
     Dosage: 10MG QD
  9. PREVACID [Concomitant]
     Dosage: 30MG QD
  10. NIFEREX [Concomitant]
  11. PERI-COLACE [Concomitant]
  12. MULTIVITAMIN ^SOLVAY^ [Concomitant]
  13. DULCOLAX [Concomitant]

REACTIONS (23)
  - ANAEMIA POSTOPERATIVE [None]
  - ARTHRALGIA [None]
  - ASTHENIA [None]
  - BONE SCAN ABNORMAL [None]
  - CATHETER PLACEMENT [None]
  - CHEST WALL PAIN [None]
  - DIFFICULTY IN WALKING [None]
  - FALL [None]
  - FEMUR FRACTURE [None]
  - GAIT DISTURBANCE [None]
  - HEADACHE [None]
  - LIVER FUNCTION TEST ABNORMAL [None]
  - METASTASES TO BONE [None]
  - MONOCYTE COUNT INCREASED [None]
  - NUCLEAR MAGNETIC RESONANCE IMAGING ABNORMAL [None]
  - OPEN REDUCTION OF FRACTURE [None]
  - OSTEONECROSIS [None]
  - PAIN IN EXTREMITY [None]
  - PELVIC PAIN [None]
  - POST PROCEDURAL HAEMORRHAGE [None]
  - RADIATION INJURY [None]
  - STRESS FRACTURE [None]
  - WHOLE BLOOD TRANSFUSION [None]
